FAERS Safety Report 9120935 (Version 1)
Quarter: 2013Q1

REPORT INFORMATION
  Report Type: Spontaneous
  Country: JP (occurrence: JP)
  Receive Date: 20130226
  Receipt Date: 20130226
  Transmission Date: 20140127
  Serious: Yes (Hospitalization)
  Sender: FDA-Public Use
  Company Number: JP-GLAXOSMITHKLINE-B0869813A

PATIENT
  Sex: Male

DRUGS (4)
  1. SERETIDE [Suspect]
     Indication: ASTHMA
     Dosage: 500MCG TWICE PER DAY
     Route: 055
  2. HARNAL [Concomitant]
     Route: 048
  3. THEODUR [Concomitant]
     Route: 048
  4. SAWATENE [Concomitant]
     Route: 048

REACTIONS (3)
  - Pneumonia [Recovered/Resolved]
  - Asthma [Unknown]
  - Treatment noncompliance [Unknown]
